FAERS Safety Report 24338630 (Version 1)
Quarter: 2024Q3

REPORT INFORMATION
  Report Type: Spontaneous
  Country: US (occurrence: US)
  Receive Date: 20240919
  Receipt Date: 20240919
  Transmission Date: 20241016
  Serious: No
  Sender: ASTELLAS
  Company Number: US-ASTELLAS-2024-AER-005567

PATIENT
  Sex: Male
  Weight: 136 kg

DRUGS (1)
  1. PADCEV [Suspect]
     Active Substance: ENFORTUMAB VEDOTIN-EJFV
     Indication: Transitional cell carcinoma
     Dosage: 165 MG FOR 2 CYCLES SO 4 TOTAL DOSES (1.25MG/KG DAYS 1 AND 8 OF 21 DAY CYCLE
     Route: 065

REACTIONS (1)
  - Overdose [Unknown]
